FAERS Safety Report 8026030-9 (Version None)
Quarter: 2012Q1

REPORT INFORMATION
  Report Type: 
  Country: None (occurrence: None)
  Receive Date: 20120105
  Receipt Date: 20110719
  Transmission Date: 20120608
  Serious: No
  Sender: FDA-Public Use
  Company Number: US-ABBOTT-11P-163-0840542-00

PATIENT
  Sex: Female
  Weight: 81.72 kg

DRUGS (2)
  1. SYNTHROID [Suspect]
  2. SYNTHROID [Suspect]
     Indication: THYROID CANCER
     Dates: start: 20110501

REACTIONS (3)
  - NAUSEA [None]
  - FEELING ABNORMAL [None]
  - WEIGHT INCREASED [None]
